FAERS Safety Report 8970473 (Version 2)
Quarter: 2013Q1

REPORT INFORMATION
  Report Type: Report from Study
  Country: UA (occurrence: UA)
  Receive Date: 20121218
  Receipt Date: 20130108
  Transmission Date: 20140127
  Serious: Yes (Hospitalization, Other)
  Sender: FDA-Public Use
  Company Number: UA-TEVA-293784ISR

PATIENT
  Age: 68 Year
  Sex: Female
  Weight: 65 kg

DRUGS (27)
  1. TL011 [Suspect]
     Indication: DIFFUSE LARGE B-CELL LYMPHOMA
     Dosage: DOUBLE BLIND: TL011  IV VS. MABTHERA
     Route: 042
     Dates: start: 20110614, end: 20111213
  2. MABTHERA [Suspect]
     Indication: DIFFUSE LARGE B-CELL LYMPHOMA
     Dosage: DOUBLE BLIND: TL011 VS. MABTHERA
     Route: 042
     Dates: start: 20110614, end: 20111213
  3. DOXORUBICIN [Suspect]
     Indication: DIFFUSE LARGE B-CELL LYMPHOMA
  4. CYCLOPHOSPHAMIDE [Suspect]
     Indication: DIFFUSE LARGE B-CELL LYMPHOMA
  5. VINCRISTINE [Suspect]
     Indication: DIFFUSE LARGE B-CELL LYMPHOMA
  6. PREDNISONE [Suspect]
     Indication: DIFFUSE LARGE B-CELL LYMPHOMA
  7. BRONCHOLYTIN [Concomitant]
     Indication: SUPPLEMENTATION THERAPY
     Dosage: 45 ML DAILY;
     Route: 048
     Dates: start: 20110510, end: 20110829
  8. GLIMEPIRIDE [Concomitant]
     Indication: DIABETES MELLITUS
     Dosage: 4 MILLIGRAM DAILY;
     Route: 048
     Dates: start: 201006
  9. PARACETAMOL [Concomitant]
     Indication: PREMEDICATION
     Dosage: 975 MILLIGRAM DAILY;
     Route: 048
     Dates: start: 20110705, end: 20110705
  10. METFORMIN [Concomitant]
     Indication: DIABETES MELLITUS
     Dosage: 1700 MILLIGRAM DAILY;
     Route: 048
     Dates: start: 20110607
  11. TILDA [Concomitant]
     Indication: SCIATICA
     Route: 048
     Dates: start: 2010
  12. KETOROLAC [Concomitant]
     Indication: SCIATICA
     Route: 048
     Dates: start: 2010
  13. DIMEDROL [Concomitant]
     Indication: PREMEDICATION
     Dosage: 30 MILLIGRAM DAILY;
     Route: 030
     Dates: start: 20110705, end: 20110705
  14. ONDANSETRON [Concomitant]
     Indication: PREMEDICATION
     Dosage: 8 MILLIGRAM DAILY;
     Route: 042
     Dates: start: 20110705, end: 20110705
  15. ONDANSETRON [Concomitant]
     Indication: PROPHYLAXIS OF NAUSEA AND VOMITING
     Route: 030
     Dates: start: 20110615, end: 20110617
  16. ONDANSETRON [Concomitant]
     Dosage: 8 MILLIGRAM DAILY;
     Route: 042
     Dates: start: 20110614, end: 20110614
  17. PYRIDOXINE [Concomitant]
     Indication: PREMEDICATION
     Dosage: 20 MILLIGRAM DAILY;
     Route: 042
     Dates: start: 20110705, end: 20110705
  18. PYRIDOXINE [Concomitant]
     Dosage: 20 MILLIGRAM DAILY;
     Route: 042
     Dates: start: 20110604, end: 20110604
  19. MILDRONATE [Concomitant]
     Indication: PREMEDICATION
     Dosage: 10 ML DAILY;
     Route: 042
     Dates: start: 20110705, end: 20110705
  20. MILDRONATE [Concomitant]
     Dosage: 10 ML DAILY;
     Route: 042
     Dates: start: 20110614, end: 20110614
  21. HARTMAN^S SOLUTION [Concomitant]
     Indication: ELECTROLYTE SUBSTITUTION THERAPY
     Dosage: 200 ML DAILY;
     Route: 042
     Dates: start: 20110705, end: 20110705
  22. HARTMAN^S SOLUTION [Concomitant]
     Dosage: 200 ML DAILY;
     Route: 042
     Dates: start: 20110614, end: 20110614
  23. LANSOPRAZOLE [Concomitant]
     Indication: PROPHYLAXIS
     Dosage: 30 MILLIGRAM DAILY;
     Dates: start: 20110614, end: 20120103
  24. POTASSIUM CHLORIDE [Concomitant]
     Indication: PREMEDICATION
     Dosage: 1500 MILLIGRAM DAILY;
     Dates: start: 20110614, end: 20120103
  25. ALMAGEL [Concomitant]
     Indication: PROPHYLAXIS
     Dosage: 15 ML DAILY;
     Dates: start: 20110614, end: 20120103
  26. FILGRASTIMUM [Concomitant]
     Indication: NEUTROPHIL COUNT
     Dosage: .3 MILLIGRAM DAILY;
     Route: 058
     Dates: start: 20110702, end: 20110702
  27. DOLAREN [Concomitant]
     Indication: SCIATICA
     Route: 061
     Dates: start: 2010

REACTIONS (4)
  - Asthenia [Recovered/Resolved]
  - Fatigue [Recovered/Resolved]
  - Decreased appetite [Recovered/Resolved]
  - Tremor [Recovered/Resolved]
